FAERS Safety Report 15962009 (Version 1)
Quarter: 2019Q1

REPORT INFORMATION
  Report Type: Spontaneous
  Country: US (occurrence: US)
  Receive Date: 20190214
  Receipt Date: 20190214
  Transmission Date: 20190417
  Serious: No
  Sender: FDA-Public Use
  Company Number: None

PATIENT
  Age: 29 Year
  Sex: Female

DRUGS (2)
  1. ORACEA [Concomitant]
     Active Substance: DOXYCYCLINE
  2. NEUPOGEN [Suspect]
     Active Substance: FILGRASTIM
     Indication: INFERTILITY FEMALE
     Dosage: OTHER FREQUENCY:Q THREE DAYS;?
     Route: 058

REACTIONS (2)
  - Off label use [None]
  - Intentional device use issue [None]

NARRATIVE: CASE EVENT DATE: 20190213
